FAERS Safety Report 24046723 (Version 1)
Quarter: 2024Q3

REPORT INFORMATION
  Report Type: Spontaneous
  Country: CH (occurrence: CH)
  Receive Date: 20240703
  Receipt Date: 20240703
  Transmission Date: 20241017
  Serious: Yes (Other)
  Sender: CMP PHARMA
  Company Number: CH-CMP PHARMA-2024CMP00034

PATIENT
  Age: 48 Year
  Sex: Male

DRUGS (1)
  1. ATORVASTATIN [Suspect]
     Active Substance: ATORVASTATIN

REACTIONS (2)
  - Compartment syndrome [Not Recovered/Not Resolved]
  - Rhabdomyolysis [Recovered/Resolved]
